FAERS Safety Report 11089629 (Version 1)
Quarter: 2015Q2

REPORT INFORMATION
  Report Type: Spontaneous
  Country: AU (occurrence: AU)
  Receive Date: 20150505
  Receipt Date: 20150505
  Transmission Date: 20150821
  Serious: Yes (Disabling)
  Sender: FDA-Public Use
  Company Number: AU-ROCHE-1573114

PATIENT
  Age: 78 Year
  Sex: Female

DRUGS (1)
  1. LUCENTIS [Suspect]
     Active Substance: RANIBIZUMAB
     Indication: NEOVASCULAR AGE-RELATED MACULAR DEGENERATION
     Route: 050

REACTIONS (8)
  - Fall [Unknown]
  - Visual acuity reduced [Unknown]
  - Drug ineffective [Unknown]
  - Contusion [Unknown]
  - Visual impairment [Unknown]
  - Retinal neovascularisation [Unknown]
  - Emotional distress [Unknown]
  - Psychiatric symptom [Unknown]
